FAERS Safety Report 4390138-X (Version None)
Quarter: 2004Q3

REPORT INFORMATION
  Report Type: 
  Country: None (occurrence: None)
  Receive Date: 20040706
  Receipt Date: 20040623
  Transmission Date: 20050211
  Serious: Yes (Hospitalization, Disabling)
  Sender: FDA-Public Use
  Company Number: US-MERCK-0406USA02188

PATIENT
  Age: 62 Year
  Sex: Female

DRUGS (1)
  1. VIOXX [Suspect]
     Indication: ARTHRITIS
     Route: 048
     Dates: start: 20040301, end: 20040101

REACTIONS (5)
  - DRY THROAT [None]
  - HEPATIC ENZYME INCREASED [None]
  - INFLUENZA [None]
  - PRURITUS [None]
  - RASH [None]
